FAERS Safety Report 13978473 (Version 1)
Quarter: 2017Q3

REPORT INFORMATION
  Report Type: Spontaneous
  Country: US (occurrence: US)
  Receive Date: 20170914
  Receipt Date: 20170914
  Transmission Date: 20171128
  Serious: No
  Sender: FDA-Public Use
  Company Number: US-009507513-1709USA007307

PATIENT
  Sex: Female

DRUGS (10)
  1. DULERA [Suspect]
     Active Substance: FORMOTEROL FUMARATE DIHYDRATE\MOMETASONE FUROATE
     Dosage: 2 PUFFS TWICE A DAY
     Route: 055
  2. PROVENTIL [Concomitant]
     Active Substance: ALBUTEROL
  3. COZAAR [Concomitant]
     Active Substance: LOSARTAN POTASSIUM
  4. OXYBUTIN [Concomitant]
     Active Substance: OXYBUTYNIN
  5. SERTRALINE HYDROCHLORIDE. [Concomitant]
     Active Substance: SERTRALINE HYDROCHLORIDE
  6. DIVALPROEX SODIUM. [Concomitant]
     Active Substance: DIVALPROEX SODIUM
  7. SINGULAIR [Concomitant]
     Active Substance: MONTELUKAST SODIUM
  8. DULERA [Suspect]
     Active Substance: FORMOTEROL FUMARATE DIHYDRATE\MOMETASONE FUROATE
     Indication: ASTHMA
     Dosage: 2 PUFFS TWICE A DAY
     Route: 055
  9. SYNTHROID [Concomitant]
     Active Substance: LEVOTHYROXINE SODIUM
  10. SIMVASTATIN TABLETS, USP [Concomitant]
     Active Substance: SIMVASTATIN

REACTIONS (4)
  - Nervousness [Recovered/Resolved]
  - Drug dose omission [Unknown]
  - Poor quality sleep [Recovered/Resolved]
  - Product quality issue [Unknown]
